FAERS Safety Report 7298297-6 (Version None)
Quarter: 2011Q1

REPORT INFORMATION
  Report Type: 
  Country: None (occurrence: None)
  Receive Date: 20110217
  Receipt Date: 20110214
  Transmission Date: 20110831
  Serious: Yes (Hospitalization)
  Sender: FDA-Public Use
  Company Number: JP-JNJCH-2011001561

PATIENT
  Age: 54 Year
  Sex: Male

DRUGS (3)
  1. UREPEARL [Concomitant]
     Indication: PRODUCT USED FOR UNKNOWN INDICATION
     Dosage: TEXT:UNKNOWN
     Route: 061
  2. ZYRTEC [Suspect]
     Indication: ECZEMA
     Dosage: TEXT:10 MG QD
     Route: 048
     Dates: start: 20090521, end: 20090501
  3. ANTEBATE [Concomitant]
     Indication: PRODUCT USED FOR UNKNOWN INDICATION
     Dosage: TEXT:UNKNOWN
     Route: 061

REACTIONS (1)
  - CONVULSION [None]
